FAERS Safety Report 17951402 (Version 1)
Quarter: 2020Q2

REPORT INFORMATION
  Report Type: Report from Study
  Country: IT (occurrence: IT)
  Receive Date: 20200626
  Receipt Date: 20200626
  Transmission Date: 20200714
  Serious: Yes (Hospitalization)
  Sender: FDA-Public Use
  Company Number: IT-TEVA-2020-IT-1791512

PATIENT
  Age: 44 Year
  Sex: Male

DRUGS (2)
  1. QUETIAPINA EG 100 MG COMPRESSE RIVESTITE CON FILM [Suspect]
     Active Substance: QUETIAPINE
     Indication: DRUG ABUSE
     Dosage: 30 DOSAGE FORMS
     Route: 048
     Dates: start: 20200520, end: 20200520
  2. LORAZEPAM RATIOPHARM 2,5 MG COMPRESSE RIVESTITE CON FILM, [Suspect]
     Active Substance: LORAZEPAM
     Indication: DRUG ABUSE
     Dosage: 10 DOSAGE FORMS
     Route: 048
     Dates: start: 20200520, end: 20200520

REACTIONS (4)
  - Somnolence [Recovered/Resolved]
  - Tachycardia [Recovered/Resolved]
  - Drug abuse [Recovered/Resolved]
  - Sedation [Recovered/Resolved]

NARRATIVE: CASE EVENT DATE: 20200520
